FAERS Safety Report 19742187 (Version 8)
Quarter: 2023Q2

REPORT INFORMATION
  Report Type: Report from Study
  Country: US (occurrence: US)
  Receive Date: 20210825
  Receipt Date: 20230511
  Transmission Date: 20230721
  Serious: Yes (Other)
  Sender: FDA-Public Use
  Company Number: US-002147023-NVSC2021US191601

PATIENT
  Sex: Female

DRUGS (2)
  1. XIIDRA [Suspect]
     Active Substance: LIFITEGRAST
     Indication: Dry eye
     Dosage: 1 DOSAGE FORM, QD
     Route: 047
     Dates: start: 202201
  2. XIIDRA [Suspect]
     Active Substance: LIFITEGRAST
     Dosage: 5 ML, BID
     Route: 047

REACTIONS (11)
  - Blindness unilateral [Unknown]
  - Dry eye [Unknown]
  - Visual impairment [Unknown]
  - Eye infection [Unknown]
  - Amnesia [Unknown]
  - Eye injury [Unknown]
  - Eye pain [Unknown]
  - Eye irritation [Unknown]
  - Product dose omission issue [Unknown]
  - Eye disorder [Unknown]
  - Head injury [Unknown]
